FAERS Safety Report 13559149 (Version 3)
Quarter: 2017Q2

REPORT INFORMATION
  Report Type: Report from Study
  Country: JP (occurrence: JP)
  Receive Date: 20170518
  Receipt Date: 20170621
  Transmission Date: 20170830
  Serious: Yes (Death, Hospitalization)
  Sender: FDA-Public Use
  Company Number: JP-EISAI MEDICAL RESEARCH-EC-2017-024452

PATIENT
  Age: 85 Year
  Sex: Female

DRUGS (5)
  1. MYSLEE [Concomitant]
     Active Substance: ZOLPIDEM TARTRATE
  2. ONGLYZA [Concomitant]
     Active Substance: SAXAGLIPTIN HYDROCHLORIDE
  3. ARICEPT [Suspect]
     Active Substance: DONEPEZIL HYDROCHLORIDE
     Indication: DEMENTIA WITH LEWY BODIES
     Route: 048
     Dates: start: 20160224, end: 20161114
  4. NOVORAPID [Concomitant]
     Active Substance: INSULIN ASPART
  5. ALESION [Concomitant]
     Active Substance: EPINASTINE HYDROCHLORIDE

REACTIONS (1)
  - Malignant neoplasm progression [Fatal]

NARRATIVE: CASE EVENT DATE: 201610
